FAERS Safety Report 20440097 (Version 1)
Quarter: 2022Q1

REPORT INFORMATION
  Report Type: Report from Study
  Country: US (occurrence: US)
  Receive Date: 20220207
  Receipt Date: 20220207
  Transmission Date: 20220423
  Serious: Yes (Death)
  Sender: FDA-Public Use
  Company Number: US-ARBOR PHARMACEUTICALS, LLC-US-2022ARB000123

PATIENT
  Age: 49 Year

DRUGS (4)
  1. GABAPENTIN ENACARBIL [Suspect]
     Active Substance: GABAPENTIN ENACARBIL
     Indication: Product used for unknown indication
     Dosage: UNK
  2. LORAZEPAM [Suspect]
     Active Substance: LORAZEPAM
     Indication: Product used for unknown indication
     Dosage: UNK
  3. NORDAZEPAM [Suspect]
     Active Substance: NORDAZEPAM
     Indication: Product used for unknown indication
     Dosage: UNK
  4. BUPRENORPHINE [Suspect]
     Active Substance: BUPRENORPHINE
     Indication: Product used for unknown indication
     Dosage: UNK

REACTIONS (7)
  - Sputum purulent [Fatal]
  - Pleural adhesion [Fatal]
  - Hypertensive cardiomyopathy [Fatal]
  - Left ventricular hypertrophy [Fatal]
  - Arteriosclerosis [Fatal]
  - Nephrosclerosis [Fatal]
  - Accidental overdose [Fatal]
